FAERS Safety Report 4637242-6 (Version None)
Quarter: 2005Q2

REPORT INFORMATION
  Report Type: 
  Country: None (occurrence: None)
  Receive Date: 20050325
  Receipt Date: 20050128
  Transmission Date: 20051028
  Serious: No
  Sender: FDA-Public Use
  Company Number: USA041285250

PATIENT
  Age: 71 Year
  Sex: Female
  Weight: 55 kg

DRUGS (9)
  1. FORTEO [Suspect]
     Indication: OSTEOPOROSIS
     Dates: start: 20041101
  2. PURINETHOL [Concomitant]
  3. AXID [Concomitant]
  4. THYROID TAB [Concomitant]
  5. ALLEGRA [Concomitant]
  6. NASCOBAL (CYANOCOBALAMIN) [Concomitant]
  7. SINGULAIR (MONTELUKAST) [Concomitant]
  8. OGEN [Concomitant]
  9. FERO-FOLIC [Concomitant]

REACTIONS (4)
  - INJECTION SITE ERYTHEMA [None]
  - INJECTION SITE HAEMORRHAGE [None]
  - INJECTION SITE IRRITATION [None]
  - RASH MACULAR [None]
